FAERS Safety Report 4569715-9 (Version None)
Quarter: 2005Q1

REPORT INFORMATION
  Report Type: 
  Country: None (occurrence: None)
  Receive Date: 20050201
  Receipt Date: 20050117
  Transmission Date: 20050727
  Serious: Yes (Hospitalization)
  Sender: FDA-Public Use
  Company Number: 2005013934

PATIENT
  Age: 52 Year
  Sex: Male

DRUGS (5)
  1. CELEBREX [Suspect]
     Indication: OSTEOARTHRITIS
     Dosage: 2 DOSES FORM (2 IN 1 D), ORAL
     Route: 048
     Dates: start: 20030708, end: 20030719
  2. AMPHOTERICIN B [Suspect]
     Indication: FUNGAL INFECTION
     Dosage: (4 IN 1 D), ORAL
     Route: 048
     Dates: start: 20030701, end: 20030719
  3. TRAMADOL HCL [Concomitant]
  4. PROPOXYPHENE HCL [Concomitant]
  5. TERAZOSIN (TERAZOSIN) [Concomitant]

REACTIONS (3)
  - ACUTE GENERALISED EXANTHEMATOUS PUSTULOSIS [None]
  - PRURITUS [None]
  - PYREXIA [None]
